FAERS Safety Report 17576207 (Version 1)
Quarter: 2020Q1

REPORT INFORMATION
  Report Type: Spontaneous
  Country: US (occurrence: US)
  Receive Date: 20200324
  Receipt Date: 20200324
  Transmission Date: 20200409
  Serious: Yes (Death)
  Sender: FDA-Public Use
  Company Number: None

PATIENT
  Age: 53 Year
  Sex: Male

DRUGS (11)
  1. TEMOZOLOMIDE. [Suspect]
     Active Substance: TEMOZOLOMIDE
     Indication: NEOPLASM MALIGNANT
     Route: 048
     Dates: start: 20200211, end: 20200312
  2. HYDROMORPHON [Concomitant]
     Active Substance: HYDROMORPHONE
  3. MEKTOVI [Concomitant]
     Active Substance: BINIMETINIB
  4. BRAFTOVI [Concomitant]
     Active Substance: ENCORAFENIB
  5. TAMSULOSIN [Concomitant]
     Active Substance: TAMSULOSIN
  6. ENOXAPARIN [Concomitant]
     Active Substance: ENOXAPARIN
  7. BACTRIM [Concomitant]
     Active Substance: SULFAMETHOXAZOLE\TRIMETHOPRIM
  8. LORAZEPAM. [Concomitant]
     Active Substance: LORAZEPAM
  9. MORPHINE SUL [Concomitant]
     Active Substance: MORPHINE SULFATE
  10. TEMOZOLOMIDE. [Suspect]
     Active Substance: TEMOZOLOMIDE
     Indication: NEOPLASM MALIGNANT
     Route: 048
     Dates: start: 20200211, end: 20200312
  11. ONDANSETRON [Concomitant]
     Active Substance: ONDANSETRON

REACTIONS (1)
  - Death [None]

NARRATIVE: CASE EVENT DATE: 20200312
